FAERS Safety Report 25629876 (Version 1)
Quarter: 2025Q3

REPORT INFORMATION
  Report Type: Report from Study
  Country: US (occurrence: US)
  Receive Date: 20250731
  Receipt Date: 20250731
  Transmission Date: 20251021
  Serious: Yes (Other)
  Sender: JOHNSON AND JOHNSON
  Company Number: US-JNJFOC-20250726941

PATIENT
  Age: 67 Year
  Sex: Female

DRUGS (1)
  1. IMAAVY [Suspect]
     Active Substance: NIPOCALIMAB-AAHU
     Indication: Myasthenia gravis
     Route: 065
     Dates: start: 20250612, end: 2025

REACTIONS (2)
  - Sepsis [Unknown]
  - Influenza [Unknown]

NARRATIVE: CASE EVENT DATE: 20250101
